FAERS Safety Report 10064925 (Version 1)
Quarter: 2014Q2

REPORT INFORMATION
  Report Type: Spontaneous
  Country: US (occurrence: None)
  Receive Date: 20140407
  Receipt Date: 20140407
  Transmission Date: 20141212
  Serious: Yes (Hospitalization)
  Sender: FDA-Public Use
  Company Number: None

PATIENT
  Age: 68 Year
  Sex: Male
  Weight: 94.5 kg

DRUGS (1)
  1. AMOXICILLIN/CLAVULANATE [Suspect]
     Indication: UPPER RESPIRATORY TRACT INFECTION
     Dosage: MG
     Route: 048
     Dates: start: 20140114, end: 20140117

REACTIONS (5)
  - Jaundice [None]
  - Feeling cold [None]
  - Dizziness [None]
  - Hepatic cirrhosis [None]
  - Liver injury [None]
